FAERS Safety Report 8120488-2 (Version None)
Quarter: 2012Q1

REPORT INFORMATION
  Report Type: 
  Country: None (occurrence: None)
  Receive Date: 20120207
  Receipt Date: 20120123
  Transmission Date: 20120608
  Serious: Yes (Hospitalization)
  Sender: FDA-Public Use
  Company Number: AU-WATSON-2012-01867

PATIENT
  Age: 73 Year
  Sex: Female

DRUGS (2)
  1. TEMAZEPAM [Suspect]
     Indication: PRODUCT USED FOR UNKNOWN INDICATION
     Dosage: X 40 YEARS PRIOR TO HOSPITALIZATION
     Route: 065
  2. TEMAZEPAM [Suspect]
     Dosage: X4 DAYS AFTER HOSPITALIZATION
     Route: 065

REACTIONS (3)
  - ECHOLALIA [None]
  - CATATONIA [None]
  - AGITATION [None]
